FAERS Safety Report 17422607 (Version 2)
Quarter: 2021Q4

REPORT INFORMATION
  Report Type: Spontaneous
  Country: JP (occurrence: JP)
  Receive Date: 20200215
  Receipt Date: 20211113
  Transmission Date: 20220303
  Serious: Yes (Death)
  Sender: FDA-Public Use
  Company Number: JP-CHUGAI-A2020008056ROCHE

PATIENT
  Age: 67 Year
  Sex: Female

DRUGS (3)
  1. PERJETA [Suspect]
     Active Substance: PERTUZUMAB
     Indication: Breast cancer
     Dosage: 420MG/14ML
     Route: 041
     Dates: start: 20200107, end: 20200107
  2. TRASTUZUMAB [Suspect]
     Active Substance: TRASTUZUMAB
     Indication: Breast cancer
     Dosage: DOSAGE IS UNCERTAIN.
     Route: 041
     Dates: start: 20200107, end: 20200107
  3. DOCETAXEL [Suspect]
     Active Substance: DOCETAXEL
     Indication: Breast cancer
     Dosage: DOSAGE IS UNCERTAIN.
     Route: 041
     Dates: start: 20200107, end: 20200107

REACTIONS (1)
  - Cardiac failure [Fatal]

NARRATIVE: CASE EVENT DATE: 20200121
